FAERS Safety Report 14974728 (Version 1)
Quarter: 2018Q2

REPORT INFORMATION
  Report Type: Spontaneous
  Country: DE (occurrence: DE)
  Receive Date: 20180605
  Receipt Date: 20180605
  Transmission Date: 20180711
  Serious: Yes (Life-Threatening, Hospitalization, Other)
  Sender: FDA-Public Use
  Company Number: DE-PFIZER INC-2018227546

PATIENT
  Age: 78 Year
  Sex: Male

DRUGS (2)
  1. IBUPROFEN. [Suspect]
     Active Substance: IBUPROFEN
     Indication: PAIN
  2. DICLOFENAC [Suspect]
     Active Substance: DICLOFENAC
     Indication: PAIN

REACTIONS (1)
  - Gastric ulcer perforation [Unknown]

NARRATIVE: CASE EVENT DATE: 20180327
